FAERS Safety Report 17919748 (Version 7)
Quarter: 2021Q1

REPORT INFORMATION
  Report Type: Report from Study
  Country: CA (occurrence: CA)
  Receive Date: 20200619
  Receipt Date: 20210126
  Transmission Date: 20210419
  Serious: Yes (Other)
  Sender: FDA-Public Use
  Company Number: CA-SAMSUNG BIOEPIS-SB-2020-20263

PATIENT
  Age: 48 Year
  Sex: Male
  Weight: 65 kg

DRUGS (1)
  1. RENFLEXIS [Suspect]
     Active Substance: INFLIXIMAB-ABDA
     Indication: CROHN^S DISEASE
     Route: 042
     Dates: start: 20191116

REACTIONS (9)
  - Product substitution issue [Not Recovered/Not Resolved]
  - Eye swelling [Recovering/Resolving]
  - Lethargy [Not Recovered/Not Resolved]
  - Hypersensitivity [Not Recovered/Not Resolved]
  - Off label use [Not Recovered/Not Resolved]
  - Ocular hyperaemia [Not Recovered/Not Resolved]
  - Pyrexia [Recovered/Resolved]
  - Eye infection [Not Recovered/Not Resolved]
  - Rosacea [Unknown]

NARRATIVE: CASE EVENT DATE: 20200830
